FAERS Safety Report 25180583 (Version 1)
Quarter: 2025Q2

REPORT INFORMATION
  Report Type: Spontaneous
  Country: US (occurrence: None)
  Receive Date: 20250409
  Receipt Date: 20250409
  Transmission Date: 20250716
  Serious: Yes (Life-Threatening, Disabling, Other)
  Sender: FDA-CTU
  Company Number: None

PATIENT
  Age: 82 Year
  Sex: Female
  Weight: 97.52 kg

DRUGS (19)
  1. AMIKACIN SULFATE [Suspect]
     Active Substance: AMIKACIN SULFATE
     Indication: Escherichia urinary tract infection
     Route: 042
     Dates: start: 20250102, end: 20250114
  2. SYNTHROID [Concomitant]
     Active Substance: LEVOTHYROXINE SODIUM
  3. Insulin: Novolog - sliding scale before meals/snacks [Concomitant]
  4. Lontus - 2.5 units daily prior to be bedtime [Concomitant]
  5. Allegra allergy meds as needed [Concomitant]
  6. XTO Str tylenol (500mg) as needed to walker required for ambulation. [Concomitant]
  7. Amoxicillin for UTI Proteus Mirabilis 100,000 875mg, 2x day, 7 days [Concomitant]
  8. Multiple Vitamins/supplements [Concomitant]
  9. Daily multiple vitamins [Concomitant]
  10. VITAMIN D3 [Concomitant]
     Active Substance: CHOLECALCIFEROL
  11. VITAMIN C [Concomitant]
     Active Substance: ASCORBIC ACID
  12. CALCIUM CITRATE [Concomitant]
     Active Substance: CALCIUM CITRATE
  13. MAGNESIUM CITRATE [Concomitant]
     Active Substance: MAGNESIUM CITRATE
  14. COENZYME Q10 [Concomitant]
     Active Substance: DIETARY SUPPLEMENT\UBIDECARENONE
  15. Super Omega 3 [Concomitant]
  16. ALPHA LIPOIC ACID [Concomitant]
     Active Substance: .ALPHA.-LIPOIC ACID
  17. CALCIUM [Concomitant]
     Active Substance: CALCIUM
  18. Genko Biloba [Concomitant]
  19. Super Strength Cranberry Concentrate [Concomitant]

REACTIONS (25)
  - Escherichia urinary tract infection [None]
  - Infusion related reaction [None]
  - Condition aggravated [None]
  - Tremor [None]
  - Dizziness [None]
  - Pain in extremity [None]
  - Peripheral swelling [None]
  - Peripheral swelling [None]
  - Nausea [None]
  - Genital hypoaesthesia [None]
  - Anal hypoaesthesia [None]
  - Chills [None]
  - Asthenia [None]
  - Muscular weakness [None]
  - Tendon disorder [None]
  - Muscle twitching [None]
  - Balance disorder [None]
  - Dysuria [None]
  - Movement disorder [None]
  - Back pain [None]
  - Myalgia [None]
  - Arthralgia [None]
  - Inflammation [None]
  - Oedema [None]
  - Sleep apnoea syndrome [None]

NARRATIVE: CASE EVENT DATE: 20250102
